FAERS Safety Report 9603464 (Version 4)
Quarter: 2014Q2

REPORT INFORMATION
  Report Type: Spontaneous
  Country: US (occurrence: US)
  Receive Date: 20131007
  Receipt Date: 20140609
  Transmission Date: 20141212
  Serious: Yes (Hospitalization, Other)
  Sender: FDA-Public Use
  Company Number: US-BRISTOL-MYERS SQUIBB COMPANY-19391440

PATIENT
  Age: 71 Year
  Sex: Male
  Weight: 81.5 kg

DRUGS (48)
  1. BYETTA [Suspect]
     Indication: TYPE 2 DIABETES MELLITUS
     Dosage: LAST DOSE ON OCT12?INJECTION
     Dates: start: 200605
  2. BYDUREON [Suspect]
  3. ZYLOPRIM [Concomitant]
     Route: 048
  4. SOMA [Concomitant]
     Route: 048
  5. NORCO [Concomitant]
     Dosage: 5-325 MG?PER TABLET?TAKE 1 TABLET BY MOUTH EVERY 6 (SIX) HOURS AS NEEDED
  6. NOVOLOG [Concomitant]
     Dosage: 100UNITLRNL(70-30)FLEXPEN INJECT 10UNITS INTO SKIN EVERY EVEG,22UNITS-SKIN DAILY WITH BREAKFAST.
     Route: 058
  7. SYNTHROID [Concomitant]
     Dosage: LEVOTHROID 1 TABLET (OF 175 MCG) TABLET ORAL DAILY
     Route: 048
  8. LIDODERM [Concomitant]
     Dosage: 5 %(700 MGI^PATCH)PLACE I PATCH ONTO THE SKIN DAILY
  9. CLARITIN D [Concomitant]
     Dosage: 12 HOUR 1 (5-120 MG) TABLET SR,12 HR ORAL Q 12 HOURS PRN,
     Route: 048
  10. MULTIVITAMIN [Concomitant]
     Dosage: 1 TABLET
     Route: 048
  11. MYSOLINE [Concomitant]
     Route: 048
  12. AMBIEN [Concomitant]
     Route: 048
  13. CIPRO [Concomitant]
     Route: 048
  14. DEXAMETHASONE SODIUM PHOSPHATE [Concomitant]
     Route: 042
  15. DIPHENOXYLATE + ATROPINE [Concomitant]
     Dosage: (2.5-0.025 MG) TABLET PRN
     Route: 048
  16. DIPHENOXYLATE + ATROPINE [Concomitant]
     Route: 048
  17. FLAGYL [Concomitant]
     Route: 048
  18. LORATADINE [Concomitant]
     Route: 048
  19. PALONOSETRON [Concomitant]
     Route: 042
  20. RISPERDAL [Concomitant]
     Dosage: AT BEDTIME
     Route: 048
  21. SODIUM CHLORIDE [Concomitant]
     Route: 042
  22. ZITHROMAX Z-PAK [Concomitant]
     Route: 048
  23. ASPIRIN [Concomitant]
     Dosage: TABS?ENTERIC COATED ORAL DAILY
     Route: 048
  24. ALIGN [Concomitant]
     Route: 048
  25. ALLOPURINOL [Concomitant]
     Route: 048
  26. AMITIZA [Concomitant]
     Dosage: CAPSULE ORAL DAILY PRN
     Route: 048
  27. CENTRUM SILVER [Concomitant]
     Route: 048
  28. DEXLANSOPRAZOLE [Concomitant]
     Route: 048
  29. DIFLUCAN [Concomitant]
     Route: 048
  30. FLOMAX [Concomitant]
     Dosage: CAPS
     Route: 048
  31. LACTRASE [Concomitant]
     Route: 048
  32. LIDOCAINE + PRILOCAINE [Concomitant]
  33. LOPID [Concomitant]
     Route: 048
  34. MEGACE [Concomitant]
     Route: 048
  35. MIRALAX [Concomitant]
     Route: 048
  36. MYSOLINE [Concomitant]
     Route: 048
  37. NYSTATIN [Concomitant]
     Dosage: 100000 UNITS/G) CREAM TOPICAL FOUR TIMES A DAY
     Route: 061
  38. OMEPRAZOLE [Concomitant]
     Route: 048
  39. PROCTOFOAM-HC [Concomitant]
  40. SUCRALFATE [Concomitant]
     Dosage: 10 ML (OF 100 GM/L0ML) SUSPENSION ORAL BID.,
     Route: 048
  41. TRAMADOL HCL [Concomitant]
     Indication: PAIN
     Route: 048
  42. ZOFRAN [Concomitant]
     Route: 048
  43. CREON [Concomitant]
     Dosage: 24000 UNITS NOS
     Route: 048
  44. GEMFIBROZIL [Concomitant]
     Route: 048
  45. TERAZOSIN HCL [Concomitant]
     Route: 048
  46. AUGMENTIN [Concomitant]
     Dosage: 1DF=1TAB
     Route: 048
  47. COLACE [Concomitant]
     Dosage: 100MG CAPS,3/DAY
     Route: 048
  48. XANAX [Concomitant]
     Dosage: BY NIGHT,TABS
     Route: 048

REACTIONS (1)
  - Adenocarcinoma pancreas [Unknown]
